FAERS Safety Report 10723868 (Version 2)
Quarter: 2015Q1

REPORT INFORMATION
  Report Type: Spontaneous
  Country: US (occurrence: None)
  Receive Date: 20150114
  Receipt Date: 20150126
  Transmission Date: 20150721
  Serious: Yes (Other)
  Sender: FDA-Public Use
  Company Number: 201501030

PATIENT
  Age: 59 Year
  Sex: Male
  Weight: 108.86 kg

DRUGS (1)
  1. TESTOPEL [Suspect]
     Active Substance: TESTOSTERONE
     Indication: HYPOGONADISM
     Dosage: PELLETS
     Route: 058

REACTIONS (3)
  - Impaired healing [None]
  - Device leakage [None]
  - Implant site haemorrhage [None]
